FAERS Safety Report 19486713 (Version 1)
Quarter: 2021Q3

REPORT INFORMATION
  Report Type: Spontaneous
  Country: US (occurrence: US)
  Receive Date: 20210702
  Receipt Date: 20210702
  Transmission Date: 20211014
  Serious: No
  Sender: FDA-Public Use
  Company Number: US-BAUSCH-BL-2021-022499

PATIENT
  Age: 80 Year
  Sex: Male

DRUGS (2)
  1. TRAVATAN Z [Concomitant]
     Active Substance: TRAVOPROST
     Indication: PRODUCT USED FOR UNKNOWN INDICATION
     Route: 047
  2. DORZOLAMIDE HYDROCHLORIDE OPHTHALMIC SOLUTION 2% [Suspect]
     Active Substance: DORZOLAMIDE HYDROCHLORIDE
     Indication: GLAUCOMA
     Dosage: ONE DROP IN BOTH EYE
     Route: 047
     Dates: start: 20210521, end: 20210523

REACTIONS (5)
  - Eyelid margin crusting [Not Recovered/Not Resolved]
  - Eye irritation [Recovering/Resolving]
  - Vision blurred [Not Recovered/Not Resolved]
  - Abnormal sensation in eye [Unknown]
  - Asthenopia [Unknown]

NARRATIVE: CASE EVENT DATE: 202105
